FAERS Safety Report 21838587 (Version 1)
Quarter: 2023Q1

REPORT INFORMATION
  Report Type: Spontaneous
  Country: US (occurrence: None)
  Receive Date: 20230108
  Receipt Date: 20230108
  Transmission Date: 20230417
  Serious: Yes (unspecified)
  Sender: FDA-Public Use
  Company Number: None

PATIENT
  Age: 55 Year
  Sex: Male
  Weight: 87.75 kg

DRUGS (6)
  1. KEYTRUDA [Suspect]
     Active Substance: PEMBROLIZUMAB
     Indication: Renal cancer
     Dates: start: 20221003, end: 20221024
  2. KEYTRUDA [Suspect]
     Active Substance: PEMBROLIZUMAB
     Indication: Renal cancer
  3. PREDNISONE [Concomitant]
     Active Substance: PREDNISONE
  4. OTEZLA [Concomitant]
     Active Substance: APREMILAST
  5. Psoriatin [Concomitant]
  6. TRIAMCINOLONE [Concomitant]
     Active Substance: TRIAMCINOLONE

REACTIONS (3)
  - Infusion related reaction [None]
  - Psoriatic arthropathy [None]
  - Drug ineffective [None]

NARRATIVE: CASE EVENT DATE: 20221005
